FAERS Safety Report 9938051 (Version 4)
Quarter: 2014Q2

REPORT INFORMATION
  Report Type: Spontaneous
  Country: JP (occurrence: JP)
  Receive Date: 20140303
  Receipt Date: 20140428
  Transmission Date: 20141212
  Serious: No
  Sender: FDA-Public Use
  Company Number: JP-AMGEN-JPNSP2014014184

PATIENT
  Age: 56 Year
  Sex: Male
  Weight: 59 kg

DRUGS (6)
  1. RANMARK [Suspect]
     Indication: METASTASES TO BONE
     Dosage: 120 MG, UNK
     Route: 042
     Dates: start: 20120627, end: 20131120
  2. ZOMETA [Suspect]
     Indication: METASTASES TO BONE
     Dosage: 4 MG, QMO
     Route: 042
     Dates: start: 20100713, end: 20120530
  3. NEXAVAR [Concomitant]
     Indication: RENAL CELL CARCINOMA
     Dosage: 800 MG, BID
     Route: 048
     Dates: start: 20100713
  4. FEBURIC [Concomitant]
     Indication: HYPERURICAEMIA
     Dosage: 20 MG, QD
     Route: 048
     Dates: start: 20130501
  5. SUTENT [Concomitant]
     Indication: RENAL CELL CARCINOMA
     Dosage: UNK
     Route: 048
     Dates: start: 20100105, end: 20100413
  6. FEBUXOSTAT [Concomitant]
     Indication: HYPERURICAEMIA
     Dosage: 20MG, QD
     Route: 048
     Dates: start: 20130501

REACTIONS (1)
  - Osteomyelitis [Not Recovered/Not Resolved]
